FAERS Safety Report 23675692 (Version 1)
Quarter: 2024Q1

REPORT INFORMATION
  Report Type: Spontaneous
  Country: US (occurrence: US)
  Receive Date: 20240327
  Receipt Date: 20240327
  Transmission Date: 20240410
  Serious: No
  Sender: FDA-Public Use
  Company Number: US-APOTEX-2024AP003626

PATIENT
  Age: 56 Year
  Sex: Female

DRUGS (6)
  1. PAXIL [Suspect]
     Active Substance: PAROXETINE HYDROCHLORIDE
     Indication: Product used for unknown indication
     Dosage: 60 MILLIGRAM
     Route: 065
  2. CAPLYTA [Suspect]
     Active Substance: LUMATEPERONE
     Indication: Product used for unknown indication
     Dosage: 42 MILLIGRAM
     Route: 065
     Dates: start: 202308, end: 20240214
  3. CAPLYTA [Suspect]
     Active Substance: LUMATEPERONE
     Dosage: 21 MILLIGRAM
     Route: 065
     Dates: start: 20240215
  4. BUSPIRONE [Suspect]
     Active Substance: BUSPIRONE HYDROCHLORIDE
     Indication: Product used for unknown indication
     Dosage: 10 MILLIGRAM
     Route: 065
  5. PROPRANOLOL [Suspect]
     Active Substance: PROPRANOLOL HYDROCHLORIDE
     Indication: Product used for unknown indication
     Dosage: 10 MILLIGRAM
     Route: 065
  6. VALIUM [Suspect]
     Active Substance: DIAZEPAM
     Indication: Product used for unknown indication
     Dosage: 10 MILLIGRAM
     Route: 065

REACTIONS (3)
  - Speech disorder developmental [Recovering/Resolving]
  - COVID-19 [Unknown]
  - Dysarthria [Unknown]

NARRATIVE: CASE EVENT DATE: 20231201
